FAERS Safety Report 15857813 (Version 4)
Quarter: 2019Q1

REPORT INFORMATION
  Report Type: Report from Study
  Country: BE (occurrence: BE)
  Receive Date: 20190123
  Receipt Date: 20190226
  Transmission Date: 20190417
  Serious: Yes (Hospitalization, Other)
  Sender: FDA-Public Use
  Company Number: BE-PFIZER INC-2019010814

PATIENT
  Age: 53 Year
  Sex: Female
  Weight: 52 kg

DRUGS (7)
  1. CRESTOR [Concomitant]
     Active Substance: ROSUVASTATIN CALCIUM
     Indication: HYPERCHOLESTEROLAEMIA
     Dosage: 40 MG, ONCE DAILY
     Route: 048
     Dates: start: 20170724
  2. ISOPTINE [Concomitant]
     Active Substance: VERAPAMIL HYDROCHLORIDE
     Indication: HYPERTENSION
     Dosage: 80 MG, ONCE DAILY
     Route: 048
  3. XELJANZ [Suspect]
     Active Substance: TOFACITINIB CITRATE
     Indication: COLITIS ULCERATIVE
     Dosage: 10 MG, TWICE DAILY
     Route: 048
     Dates: start: 20181112, end: 20190107
  4. MEDROL [Suspect]
     Active Substance: METHYLPREDNISOLONE
     Indication: COLITIS ULCERATIVE
     Dosage: 16 MG, ONCE DAILY
     Route: 048
     Dates: start: 20181224
  5. SUMATRIPTAN. [Concomitant]
     Active Substance: SUMATRIPTAN
     Indication: MIGRAINE
     Dosage: 100 MG, AS NEEDED
     Route: 048
  6. ASAFLOW [Concomitant]
     Active Substance: ASPIRIN
     Indication: PROPHYLAXIS
     Dosage: 80 MG, ONCE DAILY
     Route: 048
     Dates: start: 20180102
  7. PANTOMED [PANTOPRAZOLE SODIUM SESQUIHYDRATE] [Concomitant]
     Indication: GASTROOESOPHAGEAL REFLUX DISEASE
     Dosage: 40 MG, ONCE DAILY
     Route: 048

REACTIONS (9)
  - Abdominal abscess [Not Recovered/Not Resolved]
  - Infection [Not Recovered/Not Resolved]
  - Pneumocystis jirovecii pneumonia [Not Recovered/Not Resolved]
  - Respiratory distress [Not Recovered/Not Resolved]
  - Adenovirus infection [Recovered/Resolved]
  - Varicella [Recovered/Resolved]
  - Opportunistic infection [Not Recovered/Not Resolved]
  - Parotid abscess [Not Recovered/Not Resolved]
  - Nocardiosis [Not Recovered/Not Resolved]

NARRATIVE: CASE EVENT DATE: 201812
